FAERS Safety Report 9437205 (Version 2)
Quarter: 2013Q3

REPORT INFORMATION
  Report Type: Report from Study
  Country: MX (occurrence: MX)
  Receive Date: 20130802
  Receipt Date: 20130903
  Transmission Date: 20140515
  Serious: Yes (Hospitalization, Other)
  Sender: FDA-Public Use
  Company Number: PHHY2013MX081718

PATIENT
  Age: 72 Year
  Sex: Female

DRUGS (5)
  1. GALVUS [Suspect]
     Indication: BLOOD GLUCOSE ABNORMAL
     Dosage: 50 MG, UNK
  2. GALVUS [Suspect]
     Dosage: 50 MG, UNK
     Dates: start: 20130728
  3. GALVUS MET [Suspect]
     Indication: BLOOD GLUCOSE ABNORMAL
     Dosage: 1 DF (500/50 MG), DAILY
     Route: 048
     Dates: end: 20130728
  4. CO-DIOVAN [Suspect]
     Dosage: UNK UKN, UNK
     Dates: end: 2003
  5. DIOVAN [Suspect]
     Indication: HYPERTENSION
     Dosage: 2 UKN, DAILY
     Dates: start: 2003

REACTIONS (14)
  - Gastritis [Not Recovered/Not Resolved]
  - Vomiting [Not Recovered/Not Resolved]
  - Hypertension [Not Recovered/Not Resolved]
  - Blood pressure increased [Not Recovered/Not Resolved]
  - Malaise [Not Recovered/Not Resolved]
  - Blood glucose increased [Not Recovered/Not Resolved]
  - Diarrhoea [Not Recovered/Not Resolved]
  - Gastroenteritis radiation [Not Recovered/Not Resolved]
  - Blood cholesterol increased [Not Recovered/Not Resolved]
  - Blood triglycerides increased [Not Recovered/Not Resolved]
  - Gastrointestinal disorder [Not Recovered/Not Resolved]
  - Spinal disorder [Not Recovered/Not Resolved]
  - Limb discomfort [Not Recovered/Not Resolved]
  - Abasia [Not Recovered/Not Resolved]
